FAERS Safety Report 11972175 (Version 1)
Quarter: 2016Q1

REPORT INFORMATION
  Report Type: Spontaneous
  Country: VE (occurrence: VE)
  Receive Date: 20160128
  Receipt Date: 20160128
  Transmission Date: 20160526
  Serious: Yes (Other)
  Sender: FDA-Public Use
  Company Number: PHHY2016VE010649

PATIENT
  Age: 53 Year
  Sex: Female

DRUGS (4)
  1. FORADIL [Suspect]
     Active Substance: FORMOTEROL FUMARATE
     Indication: DYSPNOEA
  2. FORADIL [Suspect]
     Active Substance: FORMOTEROL FUMARATE
     Indication: BRONCHIAL DISORDER
     Dosage: 400 UG, QD
     Route: 055
     Dates: start: 201304
  3. MIFLONIDE [Suspect]
     Active Substance: BUDESONIDE
     Indication: DYSPNOEA
  4. MIFLONIDE [Suspect]
     Active Substance: BUDESONIDE
     Indication: BRONCHIAL DISORDER
     Dosage: 24 UG, QD
     Route: 055
     Dates: start: 201304

REACTIONS (4)
  - Product use issue [Unknown]
  - Malaise [Recovered/Resolved]
  - Asphyxia [Recovered/Resolved]
  - Dyspnoea [Recovered/Resolved]

NARRATIVE: CASE EVENT DATE: 201304
